FAERS Safety Report 21590156 (Version 1)
Quarter: 2022Q4

REPORT INFORMATION
  Report Type: Spontaneous
  Country: US (occurrence: US)
  Receive Date: 20221114
  Receipt Date: 20221114
  Transmission Date: 20230113
  Serious: No
  Sender: FDA-Public Use
  Company Number: US-LUPIN PHARMACEUTICALS INC.-2022-13239

PATIENT

DRUGS (2)
  1. ALBUTEROL SULFATE [Suspect]
     Active Substance: ALBUTEROL SULFATE
     Indication: Bronchospasm
     Dosage: UNK, PRN (AS NEEDED)
     Dates: start: 20221028
  2. ANORO ELLIPTA [Concomitant]
     Active Substance: UMECLIDINIUM BROMIDE\VILANTEROL TRIFENATATE
     Indication: Lung disorder
     Dosage: UNK
     Route: 065

REACTIONS (4)
  - Incorrect dose administered by device [Unknown]
  - Device defective [Unknown]
  - Device ineffective [Unknown]
  - Product dose omission issue [Unknown]
